FAERS Safety Report 26047679 (Version 1)
Quarter: 2025Q4

REPORT INFORMATION
  Report Type: Spontaneous
  Country: EU (occurrence: EU)
  Receive Date: 20251114
  Receipt Date: 20251114
  Transmission Date: 20260117
  Serious: Yes (Other)
  Sender: NOVARTIS
  Company Number: EU-002147023-NVSC2025DE173997

PATIENT
  Age: 59 Year
  Sex: Male

DRUGS (1)
  1. MIDOSTAURIN [Suspect]
     Active Substance: MIDOSTAURIN
     Indication: Advanced systemic mastocytosis
     Dosage: 200 MG, QD (LAST DOSE WAS 200 MG/DAY)
     Route: 065

REACTIONS (8)
  - Advanced systemic mastocytosis [Unknown]
  - Malignant neoplasm progression [Unknown]
  - Withdrawal syndrome [Unknown]
  - Fatigue [Unknown]
  - Pleural effusion [Unknown]
  - Diarrhoea [Unknown]
  - Rash [Unknown]
  - Muscle spasms [Unknown]
